FAERS Safety Report 16900602 (Version 2)
Quarter: 2019Q4

REPORT INFORMATION
  Report Type: Report from Study
  Country: US (occurrence: US)
  Receive Date: 20191009
  Receipt Date: 20191230
  Transmission Date: 20200122
  Serious: No
  Sender: FDA-Public Use
  Company Number: US-SA-2019SA270871

PATIENT
  Age: 28 Year
  Sex: Female

DRUGS (5)
  1. TERBINAFINE. [Concomitant]
     Active Substance: TERBINAFINE
  2. FOLIC ACID. [Concomitant]
     Active Substance: FOLIC ACID
  3. DUPILUMAB [Suspect]
     Active Substance: DUPILUMAB
     Indication: DERMATITIS ATOPIC
     Dosage: 600 MG, 1X
     Route: 058
     Dates: start: 201905, end: 201905
  4. GABAPENTIN. [Concomitant]
     Active Substance: GABAPENTIN
  5. DUPILUMAB [Suspect]
     Active Substance: DUPILUMAB
     Indication: PRURIGO
     Dosage: 300 MG, QOW
     Route: 058
     Dates: start: 2019

REACTIONS (3)
  - Therapeutic response decreased [Not Recovered/Not Resolved]
  - Inappropriate schedule of product administration [Unknown]
  - Pruritus [Not Recovered/Not Resolved]

NARRATIVE: CASE EVENT DATE: 201905
